FAERS Safety Report 23471285 (Version 1)
Quarter: 2024Q1

REPORT INFORMATION
  Report Type: Spontaneous
  Country: CN (occurrence: CN)
  Receive Date: 20240202
  Receipt Date: 20240202
  Transmission Date: 20240410
  Serious: Yes (Other)
  Sender: FDA-Public Use
  Company Number: CN-009507513-2401CHN016878

PATIENT
  Age: 68 Year
  Sex: Male

DRUGS (4)
  1. KEYTRUDA [Suspect]
     Active Substance: PEMBROLIZUMAB
     Indication: Hypopharyngeal cancer
     Dosage: 200 MILLIGRAM; ONCE
     Route: 041
     Dates: start: 20231120, end: 20231120
  2. CAPECITABINE [Suspect]
     Active Substance: CAPECITABINE
     Indication: Hypopharyngeal cancer
     Dosage: 1.5 G, BID
     Route: 048
     Dates: start: 20231120, end: 20231203
  3. PACLITAXEL [Suspect]
     Active Substance: PACLITAXEL
     Indication: Hypopharyngeal cancer
     Dosage: 200 MILLIGRAM, QD
     Route: 041
     Dates: start: 20231121, end: 20231121
  4. CARBOPLATIN [Suspect]
     Active Substance: CARBOPLATIN
     Indication: Hypopharyngeal cancer
     Dosage: FORMULATION: INJECTION (ALSO REPORTED AS LYOPHILIZED POWDER IN THE ORIGINAL AGENCY REPORT); 400 MILL
     Route: 041
     Dates: start: 20231121, end: 20231121

REACTIONS (5)
  - Myelosuppression [Recovered/Resolved]
  - White blood cell count decreased [Recovered/Resolved]
  - Neutrophil count decreased [Recovered/Resolved]
  - Haemoglobin decreased [Recovered/Resolved]
  - Platelet count decreased [Recovered/Resolved]

NARRATIVE: CASE EVENT DATE: 20231124
